FAERS Safety Report 6525304-8 (Version None)
Quarter: 2010Q1

REPORT INFORMATION
  Report Type: 
  Country: None (occurrence: None)
  Receive Date: 20100104
  Receipt Date: 20091229
  Transmission Date: 20100710
  Serious: Yes (Death, Life-Threatening, Hospitalization, Other)
  Sender: FDA-Public Use
  Company Number: IN-ELI_LILLY_AND_COMPANY-IN200912001646

PATIENT
  Age: 59 Year
  Sex: Female

DRUGS (3)
  1. XIGRIS [Suspect]
     Indication: SEPSIS
     Dosage: UNK, UNKNOWN
     Route: 042
     Dates: start: 20091206, end: 20091201
  2. NORADRENALINE [Concomitant]
     Dosage: UNK, UNKNOWN
     Route: 065
  3. DOPAMINE HCL [Concomitant]
     Dosage: UNK, UNKNOWN
     Route: 065

REACTIONS (3)
  - CARDIAC ARREST [None]
  - HYPOTENSION [None]
  - MULTI-ORGAN FAILURE [None]
